FAERS Safety Report 24288700 (Version 1)
Quarter: 2024Q3

REPORT INFORMATION
  Report Type: Spontaneous
  Country: CN (occurrence: CN)
  Receive Date: 20240906
  Receipt Date: 20240906
  Transmission Date: 20241016
  Serious: Yes (Hospitalization)
  Sender: ABBVIE
  Company Number: CN-ABBVIE-5904113

PATIENT
  Sex: Female
  Weight: 72 kg

DRUGS (6)
  1. VENETOCLAX [Suspect]
     Active Substance: VENETOCLAX
     Indication: Chemotherapy
     Dosage: DAY 0 TO DAY 6
     Route: 048
     Dates: start: 20240723, end: 20240728
  2. CYTARABINE HYDROCHLORIDE [Suspect]
     Active Substance: CYTARABINE HYDROCHLORIDE
     Indication: Chemotherapy
     Dosage: DAY THREE TO DAY FIVE
     Route: 041
     Dates: start: 20240725, end: 20240727
  3. OMACETAXINE MEPESUCCINATE [Suspect]
     Active Substance: OMACETAXINE MEPESUCCINATE
     Indication: Chemotherapy
     Dosage: DAY 1 TO DAY 6
     Route: 041
     Dates: start: 20240723, end: 20240728
  4. AZACITIDINE [Suspect]
     Active Substance: AZACITIDINE
     Indication: Chemotherapy
     Route: 058
     Dates: start: 20240722, end: 20240728
  5. DEXTROSE [Concomitant]
     Active Substance: DEXTROSE\DEXTROSE MONOHYDRATE
     Indication: Vehicle solution use
     Route: 041
     Dates: start: 20240723, end: 20240728
  6. SODIUM CHLORIDE [Concomitant]
     Active Substance: SODIUM CHLORIDE
     Indication: Vehicle solution use
     Dosage: FREQUENCY 0.5 DAYS
     Route: 041
     Dates: start: 20240725, end: 20240727

REACTIONS (2)
  - Myelosuppression [Recovering/Resolving]
  - Fatigue [Recovering/Resolving]

NARRATIVE: CASE EVENT DATE: 20240101
